FAERS Safety Report 4779950-2 (Version None)
Quarter: 2005Q3

REPORT INFORMATION
  Report Type: 
  Country: None (occurrence: None)
  Receive Date: 20050927
  Receipt Date: 20050923
  Transmission Date: 20060218
  Serious: Yes (Other)
  Sender: FDA-Public Use
  Company Number: US-GLAXOSMITHKLINE-A0575762A

PATIENT
  Sex: Male
  Weight: 3.5 kg

DRUGS (6)
  1. WELLBUTRIN [Suspect]
     Indication: MAJOR DEPRESSION
     Dates: start: 20050106
  2. SSRI [Concomitant]
     Indication: DRUG USE FOR UNKNOWN INDICATION
  3. PROGESTERONE [Concomitant]
  4. ASPIRIN [Concomitant]
  5. PRENATAL VITAMINS [Concomitant]
  6. CLONAZEPAM [Concomitant]

REACTIONS (2)
  - CRYPTORCHISM [None]
  - DRUG EXPOSURE DURING PREGNANCY [None]
